FAERS Safety Report 13070267 (Version 3)
Quarter: 2017Q1

REPORT INFORMATION
  Report Type: Report from Study
  Country: BG (occurrence: BG)
  Receive Date: 20161228
  Receipt Date: 20170222
  Transmission Date: 20170428
  Serious: Yes (Death, Other)
  Sender: FDA-Public Use
  Company Number: BG-AMGEN-BGRSL2016182721

PATIENT
  Age: 66 Year
  Sex: Male
  Weight: 52 kg

DRUGS (1)
  1. VECTIBIX [Suspect]
     Active Substance: PANITUMUMAB
     Indication: RECTAL CANCER
     Dosage: 300 MG, EVERY 14 DAYS
     Route: 042
     Dates: start: 20160919, end: 20161121

REACTIONS (4)
  - Condition aggravated [Not Recovered/Not Resolved]
  - Death [Fatal]
  - Pain [Not Recovered/Not Resolved]
  - Hepatic failure [Not Recovered/Not Resolved]

NARRATIVE: CASE EVENT DATE: 20161221
